FAERS Safety Report 8557499-9 (Version None)
Quarter: 2012Q3

REPORT INFORMATION
  Report Type: 
  Country: None (occurrence: None)
  Receive Date: 20120725
  Receipt Date: 20120725
  Transmission Date: 20120928
  Serious: Yes (Other)
  Sender: FDA-Public Use
  Company Number: None

PATIENT
  Sex: Male

DRUGS (1)
  1. ATORVASTATIN CALCIUM [Suspect]
     Indication: BLOOD CHOLESTEROL INCREASED
     Dosage: 20 MG ONCE A NIGHT PO
     Route: 048
     Dates: start: 20120721, end: 20120722

REACTIONS (4)
  - PRODUCT SUBSTITUTION ISSUE [None]
  - FLATULENCE [None]
  - DYSPNOEA [None]
  - ANXIETY [None]
